FAERS Safety Report 6441108-9 (Version None)
Quarter: 2009Q4

REPORT INFORMATION
  Report Type: 
  Country: None (occurrence: None)
  Receive Date: 20091116
  Receipt Date: 20091112
  Transmission Date: 20100525
  Serious: Yes (Life-Threatening, Hospitalization, Disabling)
  Sender: FDA-Public Use
  Company Number: FR-ROCHE-668307

PATIENT
  Sex: Female

DRUGS (10)
  1. ROCEPHIN [Suspect]
     Indication: DRUG USE FOR UNKNOWN INDICATION
     Route: 030
     Dates: start: 20090707, end: 20090805
  2. ARIXTRA [Suspect]
     Indication: DRUG USE FOR UNKNOWN INDICATION
     Dosage: STRENGTH: 2.5 MG/0.5 ML INJECTABLE SOLUTION IN PREFILLED SYRINGE; START DATE: 19 OR 20 JUN 2009
     Route: 058
     Dates: start: 20090619, end: 20090731
  3. ZINNAT [Concomitant]
     Indication: OTITIS MEDIA ACUTE
  4. OFLOCET [Concomitant]
     Indication: OTITIS MEDIA ACUTE
  5. CELESTENE [Concomitant]
     Indication: OTITIS MEDIA ACUTE
  6. LOVENOX [Concomitant]
  7. CIFLOX [Concomitant]
  8. CLAFORAN [Concomitant]
  9. PROTELOS [Concomitant]
  10. CACIT D3 [Concomitant]

REACTIONS (4)
  - ANURIA [None]
  - RENAL CORTICAL NECROSIS [None]
  - RENAL FAILURE ACUTE [None]
  - RENAL VASCULITIS [None]
